FAERS Safety Report 5152997-2 (Version None)
Quarter: 2006Q4

REPORT INFORMATION
  Report Type: 
  Country: None (occurrence: None)
  Receive Date: 20061117
  Receipt Date: 20060201
  Transmission Date: 20070319
  Serious: Yes (Other)
  Sender: FDA-Public Use
  Company Number: JP-BAYER-200610160BYL

PATIENT
  Age: 62 Year
  Sex: Female

DRUGS (2)
  1. ADALAT [Suspect]
     Dosage: TOTAL DAILY DOSE: 10 MG  UNIT DOSE: 10 MG
     Route: 048
     Dates: start: 20040201, end: 20040201
  2. UNKNOWN [Concomitant]

REACTIONS (3)
  - LEUKOPENIA [None]
  - RENAL FAILURE [None]
  - THROMBOCYTOPENIA [None]
